FAERS Safety Report 13486657 (Version 3)
Quarter: 2017Q2

REPORT INFORMATION
  Report Type: Spontaneous
  Country: IT (occurrence: IT)
  Receive Date: 20170426
  Receipt Date: 20170518
  Transmission Date: 20170830
  Serious: Yes (Hospitalization)
  Sender: FDA-Public Use
  Company Number: IT-IGSA-IG005372

PATIENT
  Age: 58 Year
  Sex: Male

DRUGS (4)
  1. VENITAL [Suspect]
     Active Substance: HUMAN IMMUNOGLOBULIN G
     Indication: MYASTHENIA GRAVIS
     Dosage: 50 G, UNK
     Route: 042
     Dates: start: 20170218, end: 20170219
  2. BACTRIM [Concomitant]
     Active Substance: SULFAMETHOXAZOLE\TRIMETHOPRIM
     Dosage: UNK
  3. ACYCLOVIR                          /00587301/ [Concomitant]
     Active Substance: ACYCLOVIR
     Dosage: UNK
  4. FLEBOGAMMA DIF [Suspect]
     Active Substance: HUMAN IMMUNOGLOBULIN G
     Indication: MYASTHENIA GRAVIS
     Dosage: 15 G, UNK
     Route: 042
     Dates: start: 20170220, end: 20170220

REACTIONS (4)
  - Suspected transmission of an infectious agent via product [Recovering/Resolving]
  - Acute hepatitis C [Recovering/Resolving]
  - Hypertransaminasaemia [Recovering/Resolving]
  - Hyperpyrexia [Recovered/Resolved]

NARRATIVE: CASE EVENT DATE: 20170220
